FAERS Safety Report 23204575 (Version 1)
Quarter: 2023Q4

REPORT INFORMATION
  Report Type: Report from Study
  Country: EG (occurrence: EG)
  Receive Date: 20231120
  Receipt Date: 20231120
  Transmission Date: 20240110
  Serious: Yes (Other)
  Sender: FDA-Public Use
  Company Number: EG-SANDOZ-SDZ2023EG053648

PATIENT
  Age: 49 Year
  Sex: Female

DRUGS (7)
  1. ERELZI [Suspect]
     Active Substance: ETANERCEPT-SZZS
     Indication: Ankylosing spondylitis
     Dosage: 50 MG, QW
     Route: 058
     Dates: start: 202304, end: 202310
  2. ERELZI [Suspect]
     Active Substance: ETANERCEPT-SZZS
     Indication: Rheumatoid arthritis
  3. HYDROXYCHLOROQUINE SULFATE [Concomitant]
     Active Substance: HYDROXYCHLOROQUINE SULFATE
     Indication: Ankylosing spondylitis
     Dosage: 200 MG
     Route: 048
  4. LYRICA [Concomitant]
     Active Substance: PREGABALIN
     Dosage: 1 DF, QD
     Route: 048
  5. LYRICA [Concomitant]
     Active Substance: PREGABALIN
     Indication: Nervous system disorder
     Dosage: 1 DF, BID, STARTED 3-4 YEARS AGO, STRENGTH: 150 (UNSPECIFIED UNITS))
     Route: 048
  6. NEXICURE [Concomitant]
     Indication: Gastric ulcer
     Dosage: 1 TABLET ONCE DAILY AND SHE MAKES 2 TABLETS DAILY, STARTED 1 YEAR AGO, STRENGTH: 40 (UNSPECIFIED UNI
     Route: 065
     Dates: start: 2023
  7. NEXICURE [Concomitant]
     Indication: Gastrooesophageal reflux disease

REACTIONS (16)
  - Joint swelling [Recovering/Resolving]
  - Dysstasia [Recovering/Resolving]
  - Arthritis [Recovering/Resolving]
  - Nasopharyngitis [Recovered/Resolved]
  - Diarrhoea [Recovered/Resolved]
  - Vomiting [Recovered/Resolved]
  - Abdominal pain [Recovered/Resolved]
  - Toothache [Recovered/Resolved]
  - Ear swelling [Recovered/Resolved]
  - Dysphagia [Recovered/Resolved]
  - Feeding disorder [Recovered/Resolved]
  - Sinusitis [Recovered/Resolved]
  - Product dose omission issue [Unknown]
  - Drug ineffective [Unknown]
  - Laboratory test abnormal [Unknown]
  - Injection site pain [Unknown]

NARRATIVE: CASE EVENT DATE: 20230401
